FAERS Safety Report 5526248-0 (Version None)
Quarter: 2007Q4

REPORT INFORMATION
  Report Type: 
  Country: None (occurrence: None)
  Receive Date: 20071127
  Receipt Date: 20071119
  Transmission Date: 20080405
  Serious: Yes (Life-Threatening, Hospitalization)
  Sender: FDA-Public Use
  Company Number: TW-JNJFOC-20070802376

PATIENT
  Age: 1 Decade
  Sex: Male
  Weight: 29 kg

DRUGS (4)
  1. CONCERTA [Suspect]
     Dosage: TAKING 2, 18MG TABLETS IN AM
     Route: 048
  2. CONCERTA [Suspect]
     Indication: ATTENTION DEFICIT/HYPERACTIVITY DISORDER
     Dosage: TAKING 2, 18MG TABLETS IN AM
     Route: 048
  3. RITALIN [Concomitant]
  4. WELLBUTRIN [Concomitant]

REACTIONS (2)
  - CEREBRAL HAEMORRHAGE [None]
  - HEADACHE [None]
